FAERS Safety Report 19673796 (Version 1)
Quarter: 2021Q3

REPORT INFORMATION
  Report Type: Spontaneous
  Country: US (occurrence: US)
  Receive Date: 20210807
  Receipt Date: 20210807
  Transmission Date: 20211014
  Serious: No
  Sender: FDA-Public Use
  Company Number: None

PATIENT
  Sex: Female

DRUGS (1)
  1. VUMERITY [Suspect]
     Active Substance: DIROXIMEL FUMARATE
     Indication: MULTIPLE SCLEROSIS
     Route: 048
     Dates: start: 20210728

REACTIONS (5)
  - Hypersomnia [None]
  - Balance disorder [None]
  - Therapeutic response decreased [None]
  - Hemiparesis [None]
  - Fine motor skill dysfunction [None]
